FAERS Safety Report 7701843-9 (Version None)
Quarter: 2011Q3

REPORT INFORMATION
  Report Type: 
  Country: None (occurrence: None)
  Receive Date: 20110822
  Receipt Date: 20110811
  Transmission Date: 20111222
  Serious: Yes (Hospitalization, Other)
  Sender: FDA-Public Use
  Company Number: US-BAYER-2011-054000

PATIENT
  Age: 22 Year
  Sex: Female
  Weight: 90.703 kg

DRUGS (8)
  1. IV FLUIDS [Concomitant]
  2. YASMIN [Suspect]
     Dosage: UNK
     Dates: start: 20050901, end: 20071120
  3. KEPPRA [Concomitant]
  4. PERCOCET [Concomitant]
  5. YASMIN [Suspect]
     Indication: CONTRACEPTION
     Dosage: UNK
     Dates: start: 20030501
  6. BENADRYL [Concomitant]
  7. PHENERGAN HCL [Concomitant]
  8. COMPAZINE [Concomitant]

REACTIONS (2)
  - INTRACRANIAL VENOUS SINUS THROMBOSIS [None]
  - HEADACHE [None]
